FAERS Safety Report 10946977 (Version 1)
Quarter: 2015Q1

REPORT INFORMATION
  Report Type: Spontaneous
  Country: US (occurrence: US)
  Receive Date: 20150323
  Receipt Date: 20150323
  Transmission Date: 20150721
  Serious: Yes (Hospitalization, Other)
  Sender: FDA-Public Use
  Company Number: US-UCBSA-2015004640

PATIENT
  Age: 30 Year
  Sex: Female
  Weight: 78.9 kg

DRUGS (5)
  1. BUDESONIDE. [Concomitant]
     Active Substance: BUDESONIDE
     Indication: CROHN^S DISEASE
     Dosage: 9 MG, ONCE DAILY (QD)
     Route: 048
     Dates: start: 2015
  2. CIMZIA [Suspect]
     Active Substance: CERTOLIZUMAB PEGOL
     Indication: COLITIS ULCERATIVE
     Dosage: 400 MG, EV 2 WEEKS(QOW)
     Route: 058
     Dates: start: 201206, end: 201207
  3. CIMZIA [Suspect]
     Active Substance: CERTOLIZUMAB PEGOL
     Indication: OFF LABEL USE
     Dosage: 400 MG, EV 2 WEEKS(QOW)
     Route: 058
     Dates: start: 2015
  4. CIMZIA [Suspect]
     Active Substance: CERTOLIZUMAB PEGOL
     Indication: CROHN^S DISEASE
  5. LOMOTIL [Concomitant]
     Active Substance: ATROPINE SULFATE\DIPHENOXYLATE HYDROCHLORIDE
     Indication: PRODUCT USED FOR UNKNOWN INDICATION
     Dosage: 2 IN AM AND 2 IN PM
     Route: 048

REACTIONS (4)
  - Off label use [Unknown]
  - Rash generalised [Recovering/Resolving]
  - Eye swelling [Recovering/Resolving]
  - Colectomy [Recovered/Resolved]

NARRATIVE: CASE EVENT DATE: 201206
